FAERS Safety Report 9272654 (Version 3)
Quarter: 2013Q3

REPORT INFORMATION
  Report Type: Spontaneous
  Country: GB (occurrence: GB)
  Receive Date: 20130506
  Receipt Date: 20130705
  Transmission Date: 20140515
  Serious: Yes (Disabling, Other)
  Sender: FDA-Public Use
  Company Number: GB-AMGEN-GBRSP2013030291

PATIENT
  Age: 56 Year
  Sex: Female
  Weight: 57 kg

DRUGS (2)
  1. PROLIA [Suspect]
     Indication: OSTEOPOROSIS
     Dosage: 60 MG, UNK
     Route: 058
     Dates: start: 20120810, end: 201303
  2. NAPROXEN [Concomitant]
     Indication: BACK PAIN
     Route: 048

REACTIONS (12)
  - Eye swelling [Not Recovered/Not Resolved]
  - Blepharitis [Unknown]
  - Dry eye [Unknown]
  - Rash pruritic [Not Recovered/Not Resolved]
  - Skin exfoliation [Not Recovered/Not Resolved]
  - Rash erythematous [Not Recovered/Not Resolved]
  - Cystitis [Unknown]
  - Eye pain [Unknown]
  - Swelling face [Not Recovered/Not Resolved]
  - Drug hypersensitivity [Not Recovered/Not Resolved]
  - Glomerular filtration rate decreased [Unknown]
  - Blood immunoglobulin M decreased [Unknown]
